FAERS Safety Report 8924676 (Version 1)
Quarter: 2012Q4

REPORT INFORMATION
  Report Type: 
  Country: US (occurrence: US)
  Receive Date: 20121126
  Receipt Date: 20121126
  Transmission Date: 20130627
  Serious: No
  Sender: FDA-Public Use
  Company Number: US-BRISTOL-MYERS SQUIBB COMPANY-17109067

PATIENT
  Age: 5 None
  Sex: Male

DRUGS (1)
  1. KOMBIGLYZE XR [Suspect]
     Dosage: 1DF: 2.5/1000, 2 tablets daily

REACTIONS (1)
  - Glycosylated haemoglobin increased [Unknown]
